FAERS Safety Report 9630956 (Version 3)
Quarter: 2014Q1

REPORT INFORMATION
  Report Type: Spontaneous
  Country: US (occurrence: None)
  Receive Date: 20131015
  Receipt Date: 20140304
  Transmission Date: 20141002
  Serious: Yes (Hospitalization, Other)
  Sender: FDA-Public Use
  Company Number: 2012US000841

PATIENT
  Age: 36 Year
  Sex: Male
  Weight: 116.8 kg

DRUGS (24)
  1. PONATINIB [Suspect]
     Indication: CHRONIC MYELOID LEUKAEMIA
     Route: 048
     Dates: start: 20090923, end: 20120928
  2. LISINOPRIL [Concomitant]
  3. TEKTURNA [Concomitant]
  4. AMLODIPINE BESYLATE [Concomitant]
  5. DICYCLOMINE [Concomitant]
  6. ATIVAN [Concomitant]
  7. METHOCARBAMOL [Concomitant]
  8. LABETALOL [Concomitant]
  9. MIRALAX [Concomitant]
  10. DOCUSATE [Concomitant]
  11. PROTONIX [Concomitant]
  12. LANTUS [Concomitant]
  13. HUMALOG [Concomitant]
  14. LIPTOR [Concomitant]
  15. HYDROCHLOROTHIAZIDE [Concomitant]
  16. ASPIRIN [Concomitant]
  17. PLAVIX [Concomitant]
  18. TOPAMAX [Concomitant]
  19. OXYCODONE [Concomitant]
  20. OXYCONTIN [Concomitant]
  21. CIPROFLOXACIN [Concomitant]
  22. BACLOFEN [Concomitant]
  23. PRILOSEC [Concomitant]
  24. SIMVASTAIN [Concomitant]

REACTIONS (6)
  - Cholecystitis acute [None]
  - Pancreatitis [None]
  - Blood potassium decreased [None]
  - Blood glucose increased [None]
  - Blood pressure increased [None]
  - Pancreatitis [None]
